FAERS Safety Report 5311690-3 (Version None)
Quarter: 2007Q2

REPORT INFORMATION
  Report Type: 
  Country: None (occurrence: None)
  Receive Date: 20070426
  Receipt Date: 20070426
  Transmission Date: 20071010
  Serious: Yes (Life-Threatening, Hospitalization)
  Sender: FDA-Public Use
  Company Number: None

PATIENT
  Age: 82 Year
  Sex: Female
  Weight: 40.8237 kg

DRUGS (6)
  1. ATORVASTATIN CALCIUM [Suspect]
     Indication: HYPERLIPIDAEMIA
     Dosage: 40 MG DAILY PO
     Route: 048
     Dates: start: 20060301, end: 20060401
  2. ASPIRIN [Concomitant]
  3. ATENOLOL [Concomitant]
  4. COLCHICINE [Concomitant]
  5. NIFEDIPINE [Concomitant]
  6. SPIRONOLACTONE [Concomitant]

REACTIONS (4)
  - GAIT DISTURBANCE [None]
  - MUSCLE ATROPHY [None]
  - RENAL FAILURE ACUTE [None]
  - RHABDOMYOLYSIS [None]
